FAERS Safety Report 7386320-X (Version None)
Quarter: 2011Q1

REPORT INFORMATION
  Report Type: 
  Country: None (occurrence: None)
  Receive Date: 20110331
  Receipt Date: 20110317
  Transmission Date: 20110831
  Serious: Yes (Hospitalization)
  Sender: FDA-Public Use
  Company Number: PHHY2011VE22969

PATIENT
  Sex: Female

DRUGS (3)
  1. IPRATROPIUM BROMIDE [Concomitant]
  2. LECARDIP [Concomitant]
     Dosage: TWICE A DAY
  3. DIOVAN [Suspect]
     Indication: HYPERTENSION
     Dosage: 160 MG, QD

REACTIONS (3)
  - PNEUMONIA [None]
  - ASTHMA [None]
  - TACHYCARDIA [None]
